FAERS Safety Report 18594165 (Version 1)
Quarter: 2020Q4

REPORT INFORMATION
  Report Type: Spontaneous
  Country: US (occurrence: US)
  Receive Date: 20201029
  Receipt Date: 20201029
  Transmission Date: 20210114
  Serious: No
  Sender: FDA-Public Use
  Company Number: None

PATIENT
  Age: 8 Decade
  Sex: Male

DRUGS (3)
  1. HYDROXYCHLOROQUINE [Suspect]
     Active Substance: HYDROXYCHLOROQUINE
     Indication: COVID-19
     Dates: start: 2020
  2. AZITHROMYCIN ANHYDROUS. [Suspect]
     Active Substance: AZITHROMYCIN ANHYDROUS
  3. IMMUNOGLOBULINS, INTRAVENOUS [Suspect]
     Active Substance: HUMAN IMMUNOGLOBULIN G

REACTIONS (15)
  - Ataxia [None]
  - Frontotemporal dementia [None]
  - Axonal and demyelinating polyneuropathy [None]
  - Memory impairment [None]
  - Quadriparesis [None]
  - Eye movement disorder [None]
  - Hallucinations, mixed [None]
  - Neuralgia [None]
  - Paranoia [None]
  - Delusion [None]
  - Dysphagia [None]
  - Autonomic nervous system imbalance [None]
  - Electrocardiogram QT prolonged [None]
  - Myoclonus [None]
  - Hyperreflexia [None]
